FAERS Safety Report 18144450 (Version 1)
Quarter: 2020Q3

REPORT INFORMATION
  Report Type: Spontaneous
  Country: CA (occurrence: CA)
  Receive Date: 20200813
  Receipt Date: 20200813
  Transmission Date: 20201103
  Serious: Yes (Hospitalization)
  Sender: FDA-Public Use
  Company Number: CA-TEVA-2020-CA-1813368

PATIENT
  Age: 72 Year
  Sex: Male
  Weight: 59 kg

DRUGS (23)
  1. ACETAMINOPHEN. [Concomitant]
     Active Substance: ACETAMINOPHEN
  2. ALENDRONATE [Concomitant]
     Active Substance: ALENDRONATE SODIUM
  3. LACTULOSE SYRUP [Concomitant]
     Active Substance: LACTULOSE
  4. NITROGLYCERIN. [Concomitant]
     Active Substance: NITROGLYCERIN
  5. SANDOZ VORICONAZOLE [Suspect]
     Active Substance: VORICONAZOLE
     Dosage: 400 MILLIGRAM DAILY;
     Route: 048
  6. OXYCODONE [Concomitant]
     Active Substance: OXYCODONE
  7. PREGABALIN. [Concomitant]
     Active Substance: PREGABALIN
  8. SANDOZ VORICONAZOLE [Suspect]
     Active Substance: VORICONAZOLE
     Indication: BRONCHOPULMONARY ASPERGILLOSIS
     Dosage: 400 MILLIGRAM DAILY;
     Route: 048
  9. CALCIUM CARBONATE. [Concomitant]
     Active Substance: CALCIUM CARBONATE
  10. INSPIOLTO RESPIMAT FOR ORAL INHALATION.WITH INSPIOLTO RESPIMAT INHALER [Concomitant]
  11. CEFUROXIME. [Concomitant]
     Active Substance: CEFUROXIME
  12. POLYETHYLENE GLYCOL [Concomitant]
     Active Substance: POLYETHYLENE GLYCOLS
  13. QVAR [Concomitant]
     Active Substance: BECLOMETHASONE DIPROPIONATE
  14. ADVAIR HFA [Concomitant]
     Active Substance: FLUTICASONE PROPIONATE\SALMETEROL XINAFOATE
  15. GLYCERIN. [Concomitant]
     Active Substance: GLYCERIN
  16. SENNOSIDES. [Concomitant]
     Active Substance: SENNOSIDES
  17. VITAMIN D [Concomitant]
     Active Substance: VITAMIN D NOS
  18. LANCORA [Concomitant]
     Active Substance: IVABRADINE
  19. PANTOPRAZOLE [Concomitant]
     Active Substance: PANTOPRAZOLE
  20. TRANEXAMIC ACID. [Concomitant]
     Active Substance: TRANEXAMIC ACID
  21. TEVA?VORICONAZOLE [Suspect]
     Active Substance: VORICONAZOLE
     Indication: BRONCHOPULMONARY ASPERGILLOSIS
     Dosage: 300 MILLIGRAM DAILY;
     Route: 048
  22. ROSUVASTATIN. [Concomitant]
     Active Substance: ROSUVASTATIN
  23. ZOPICLONE [Concomitant]
     Active Substance: ZOPICLONE

REACTIONS (7)
  - Agitation [Unknown]
  - Confusional state [Unknown]
  - Drug level above therapeutic [Unknown]
  - Mental impairment [Unknown]
  - Myoclonus [Unknown]
  - Delirium [Unknown]
  - Hallucination, visual [Unknown]
